FAERS Safety Report 25422453 (Version 2)
Quarter: 2025Q3

REPORT INFORMATION
  Report Type: Spontaneous
  Country: US (occurrence: US)
  Receive Date: 20250611
  Receipt Date: 20250819
  Transmission Date: 20251020
  Serious: Yes (Other)
  Sender: ROCHE
  Company Number: US-ROCHE-10000301652

PATIENT
  Age: 81 Year
  Sex: Female
  Weight: 68.95 kg

DRUGS (20)
  1. CELLCEPT [Suspect]
     Active Substance: MYCOPHENOLATE MOFETIL
     Indication: Product used for unknown indication
     Route: 065
  2. TYVASO DPI [Suspect]
     Active Substance: TREPROSTINIL
     Indication: Pulmonary arterial hypertension
     Dosage: QID
     Route: 050
     Dates: start: 20241216
  3. TYVASO DPI [Suspect]
     Active Substance: TREPROSTINIL
     Indication: Pulmonary arterial hypertension
  4. PREDNISONE [Suspect]
     Active Substance: PREDNISONE
     Indication: Product used for unknown indication
     Route: 065
  5. VITAMIN D2 [Concomitant]
     Active Substance: ERGOCALCIFEROL
  6. LIPITOR [Concomitant]
     Active Substance: ATORVASTATIN CALCIUM
  7. GEMTESA [Concomitant]
     Active Substance: VIBEGRON
  8. MELATONIN [Concomitant]
     Active Substance: MELATONIN
  9. MINERALS\VITAMINS [Concomitant]
     Active Substance: MINERALS\VITAMINS
  10. CoQmax ubiquinol [Concomitant]
  11. DIOVAN [Concomitant]
     Active Substance: VALSARTAN
  12. LASIX [Concomitant]
     Active Substance: FUROSEMIDE
  13. CALTRATE [Concomitant]
     Active Substance: CALCIUM CARBONATE
  14. BYSTOLIC [Concomitant]
     Active Substance: NEBIVOLOL HYDROCHLORIDE
  15. GABAPENTIN [Concomitant]
     Active Substance: GABAPENTIN
  16. ZETIA [Concomitant]
     Active Substance: EZETIMIBE
  17. ASPIRIN [Concomitant]
     Active Substance: ASPIRIN
  18. PRILOSEC [Concomitant]
     Active Substance: OMEPRAZOLE MAGNESIUM
  19. STIOLTO RESPIMAT [Concomitant]
     Active Substance: OLODATEROL HYDROCHLORIDE\TIOTROPIUM BROMIDE MONOHYDRATE
  20. PLAVIX [Concomitant]
     Active Substance: CLOPIDOGREL BISULFATE

REACTIONS (5)
  - Urinary tract infection [Recovered/Resolved]
  - Myocardial ischaemia [Unknown]
  - Headache [Not Recovered/Not Resolved]
  - Cough [Unknown]
  - Coronary artery disease [Unknown]

NARRATIVE: CASE EVENT DATE: 20241216
